FAERS Safety Report 25038296 (Version 3)
Quarter: 2025Q3

REPORT INFORMATION
  Report Type: Spontaneous
  Country: JP (occurrence: JP)
  Receive Date: 20250304
  Receipt Date: 20250717
  Transmission Date: 20251021
  Serious: Yes (Disabling)
  Sender: MERCK SHARP & DOHME LLC
  Company Number: JP-MSD-M2025-00290

PATIENT
  Age: 74 Year
  Sex: Female

DRUGS (1)
  1. KEYTRUDA [Suspect]
     Active Substance: PEMBROLIZUMAB
     Indication: Cancer with a high tumour mutational burden
     Route: 041
     Dates: start: 202409, end: 202501

REACTIONS (6)
  - Taste disorder [Recovered/Resolved]
  - Oral candidiasis [Recovered/Resolved]
  - Neuralgia [Unknown]
  - Stomatitis [Unknown]
  - Pharyngitis [Unknown]
  - Eating disorder [Unknown]

NARRATIVE: CASE EVENT DATE: 20241201
